FAERS Safety Report 17056316 (Version 1)
Quarter: 2019Q4

REPORT INFORMATION
  Report Type: Spontaneous
  Country: US (occurrence: US)
  Receive Date: 20191121
  Receipt Date: 20191121
  Transmission Date: 20200122
  Serious: No
  Sender: FDA-Public Use
  Company Number: US-009507513-1911USA008186

PATIENT
  Age: 59 Year
  Sex: Female
  Weight: 95.24 kg

DRUGS (3)
  1. STEGLATRO [Suspect]
     Active Substance: ERTUGLIFLOZIN PIDOLATE
     Indication: DIABETES MELLITUS
     Dosage: 1 DAILY
     Route: 048
     Dates: start: 20190724, end: 20191109
  2. METFORMIN [Concomitant]
     Active Substance: METFORMIN HYDROCHLORIDE
     Dosage: 2 DAILY, STRENGTH: 500 (UNIT NOT SPECIFIED)
  3. INSULIN [Concomitant]
     Active Substance: INSULIN NOS
     Dosage: 50 INTERNATIONAL UNIT, QD (NIGHTLY)

REACTIONS (2)
  - Blood glucose increased [Not Recovered/Not Resolved]
  - Product dose omission [Unknown]

NARRATIVE: CASE EVENT DATE: 201911
